FAERS Safety Report 16441713 (Version 1)
Quarter: 2019Q2

REPORT INFORMATION
  Report Type: Report from Study
  Country: US (occurrence: US)
  Receive Date: 20190617
  Receipt Date: 20190617
  Transmission Date: 20190711
  Serious: No
  Sender: FDA-Public Use
  Company Number: US-US WORLDMEDS, LLC-USW201805-000831

PATIENT
  Age: 63 Year
  Sex: Male
  Weight: 90.71 kg

DRUGS (8)
  1. AZILECT [Concomitant]
     Active Substance: RASAGILINE MESYLATE
     Dates: start: 20171107
  2. NEUPRO [Concomitant]
     Active Substance: ROTIGOTINE
     Dates: start: 20171107
  3. APOKYN [Suspect]
     Active Substance: APOMORPHINE HYDROCHLORIDE
  4. NEUPRO [Concomitant]
     Active Substance: ROTIGOTINE
     Dates: start: 20170713
  5. ENTACAPONE. [Concomitant]
     Active Substance: ENTACAPONE
     Route: 048
     Dates: start: 20171107
  6. APOKYN [Suspect]
     Active Substance: APOMORPHINE HYDROCHLORIDE
     Indication: PARKINSON^S DISEASE
     Route: 058
     Dates: start: 20180516
  7. LEVOTHYROXINE. [Concomitant]
     Active Substance: LEVOTHYROXINE
     Dates: start: 20161229
  8. SINEMET [Concomitant]
     Active Substance: CARBIDOPA\LEVODOPA
     Dates: start: 20170721

REACTIONS (3)
  - Treatment noncompliance [Unknown]
  - Vomiting [Recovered/Resolved]
  - Nausea [Recovered/Resolved]

NARRATIVE: CASE EVENT DATE: 20180520
